FAERS Safety Report 17752664 (Version 1)
Quarter: 2020Q2

REPORT INFORMATION
  Report Type: Spontaneous
  Country: US (occurrence: US)
  Receive Date: 20200506
  Receipt Date: 20200506
  Transmission Date: 20200714
  Serious: No
  Sender: FDA-Public Use
  Company Number: US-ROCHE-2426590

PATIENT
  Sex: Female

DRUGS (15)
  1. CIPRO [Concomitant]
     Active Substance: CIPROFLOXACIN HYDROCHLORIDE
     Route: 065
  2. ALOE VERA [Concomitant]
     Active Substance: ALOE VERA LEAF
     Route: 065
  3. PROBIOTICA [Concomitant]
     Active Substance: PROBIOTICS NOS
     Route: 048
  4. LISINOPRIL. [Concomitant]
     Active Substance: LISINOPRIL
     Route: 048
  5. ESBRIET [Suspect]
     Active Substance: PIRFENIDONE
     Indication: IDIOPATHIC PULMONARY FIBROSIS
     Route: 048
  6. ARNUITY ELLIPTA [Concomitant]
     Active Substance: FLUTICASONE FUROATE
     Dosage: 100 MCG
     Route: 065
  7. LUTEIN [XANTOFYL] [Concomitant]
     Route: 048
  8. VITAMIN D [ERGOCALCIFEROL] [Concomitant]
     Active Substance: ERGOCALCIFEROL
     Route: 048
  9. PAXIL [Concomitant]
     Active Substance: PAROXETINE HYDROCHLORIDE
     Route: 048
  10. VITAMIN C [Concomitant]
     Active Substance: ASCORBIC ACID
     Route: 065
  11. ZANTAC 75 [Concomitant]
     Active Substance: RANITIDINE HYDROCHLORIDE
     Route: 048
  12. FLAGYL [Concomitant]
     Active Substance: METRONIDAZOLE\METRONIDAZOLE HYDROCHLORIDE
     Route: 065
  13. LASIX [Concomitant]
     Active Substance: FUROSEMIDE
     Route: 048
  14. POTASSIUM CHLORIDE. [Concomitant]
     Active Substance: POTASSIUM CHLORIDE
     Route: 048
  15. ZOCOR [Concomitant]
     Active Substance: SIMVASTATIN
     Route: 048

REACTIONS (2)
  - No adverse event [Unknown]
  - Product dose omission [Unknown]
